FAERS Safety Report 14127856 (Version 2)
Quarter: 2017Q4

REPORT INFORMATION
  Report Type: Spontaneous
  Country: US (occurrence: US)
  Receive Date: 20171026
  Receipt Date: 20171031
  Transmission Date: 20180321
  Serious: No
  Sender: FDA-Public Use
  Company Number: US-PFIZER INC-2017458885

PATIENT
  Age: 44 Year
  Sex: Male
  Weight: 108.41 kg

DRUGS (4)
  1. LYRICA [Suspect]
     Active Substance: PREGABALIN
     Indication: NEURALGIA
     Dosage: 100 MG, 3X/DAY
     Route: 048
     Dates: start: 2016
  2. CYCLOBENZAPRINE. [Concomitant]
     Active Substance: CYCLOBENZAPRINE
     Indication: MUSCLE SPASMS
     Dosage: 10 MG, AS NEEDED (1 TABLET EVERY 6 HOURS AS NEEDED)
     Dates: start: 2016
  3. CODEINE [Concomitant]
     Active Substance: CODEINE
     Dosage: UNK
  4. NORCO [Concomitant]
     Active Substance: ACETAMINOPHEN\HYDROCODONE BITARTRATE
     Indication: PAIN
     Dosage: UNK, AS NEEDED (EVERY 6 HOURS)
     Route: 048
     Dates: start: 20160429

REACTIONS (3)
  - Drug effect incomplete [Not Recovered/Not Resolved]
  - Product quality issue [Unknown]
  - Poor quality drug administered [Unknown]

NARRATIVE: CASE EVENT DATE: 2017
